FAERS Safety Report 23796078 (Version 4)
Quarter: 2025Q2

REPORT INFORMATION
  Report Type: Report from Study
  Country: JP (occurrence: JP)
  Receive Date: 20240429
  Receipt Date: 20250603
  Transmission Date: 20250716
  Serious: Yes (Other)
  Sender: ABBVIE
  Company Number: JP-TAKEDA-2020TJP015860

PATIENT
  Age: 54 Year
  Sex: Male

DRUGS (16)
  1. LEUPROLIDE ACETATE [Suspect]
     Active Substance: LEUPROLIDE ACETATE
     Indication: Bulbospinal muscular atrophy congenital
     Dosage: 11.25 MILLIGRAM, Q3MONTHS
     Route: 058
     Dates: start: 20190411
  2. ACETAMINOPHEN [Concomitant]
     Active Substance: ACETAMINOPHEN
     Indication: Bulbospinal muscular atrophy congenital
     Route: 065
     Dates: start: 20231027
  3. RABEPRAZOLE SODIUM [Concomitant]
     Active Substance: RABEPRAZOLE SODIUM
     Indication: Product used for unknown indication
     Route: 065
     Dates: start: 20220210
  4. AMLODIPINE [Concomitant]
     Active Substance: AMLODIPINE BESYLATE
     Indication: Product used for unknown indication
     Route: 065
     Dates: start: 20180612
  5. EPLERENONE [Concomitant]
     Active Substance: EPLERENONE
     Indication: Product used for unknown indication
     Route: 065
     Dates: start: 20180817
  6. FAMOTIDINE [Concomitant]
     Active Substance: FAMOTIDINE
     Indication: Product used for unknown indication
     Route: 065
     Dates: start: 20181030, end: 20210526
  7. PRAMIPEXOLE [Concomitant]
     Active Substance: PRAMIPEXOLE
     Indication: Bulbospinal muscular atrophy congenital
     Route: 065
     Dates: start: 20190307, end: 20220728
  8. VOLTAREN [Concomitant]
     Active Substance: DICLOFENAC SODIUM
     Indication: Bulbospinal muscular atrophy congenital
     Route: 065
     Dates: start: 20190411
  9. LOXOPROFEN [Concomitant]
     Active Substance: LOXOPROFEN
     Indication: Bulbospinal muscular atrophy congenital
     Route: 065
  10. SHAKUYAKUKANZOTO [Concomitant]
     Active Substance: HERBALS
     Indication: Bulbospinal muscular atrophy congenital
     Route: 065
     Dates: start: 20190926, end: 20200819
  11. PETROLATUM [Concomitant]
     Active Substance: PETROLATUM
     Indication: Product used for unknown indication
     Route: 065
     Dates: start: 20200413
  12. LAMISIL [Concomitant]
     Active Substance: TERBINAFINE HYDROCHLORIDE
     Indication: Product used for unknown indication
     Route: 065
     Dates: start: 20200424
  13. EURAX [Concomitant]
     Active Substance: CROTAMITON
     Indication: Product used for unknown indication
     Route: 065
     Dates: start: 20200430
  14. DICLOFENAC [Concomitant]
     Active Substance: DICLOFENAC
     Indication: Bulbospinal muscular atrophy congenital
     Route: 065
     Dates: start: 20200825
  15. RABEPRAZOLE SODIUM [Concomitant]
     Active Substance: RABEPRAZOLE SODIUM
     Indication: Product used for unknown indication
     Route: 065
     Dates: start: 20210526, end: 20220209
  16. REBAMIPIDE [Concomitant]
     Active Substance: REBAMIPIDE
     Indication: Product used for unknown indication
     Route: 065
     Dates: start: 20210526

REACTIONS (7)
  - Foot fracture [Recovered/Resolved]
  - Bronchitis [Recovered/Resolved]
  - Infected dermal cyst [Recovered/Resolved]
  - Rhinitis [Recovered/Resolved]
  - Osteoporosis [Not Recovered/Not Resolved]
  - Influenza like illness [Recovered/Resolved]
  - Diabetes mellitus [Not Recovered/Not Resolved]

NARRATIVE: CASE EVENT DATE: 20200106
